FAERS Safety Report 18056023 (Version 1)
Quarter: 2020Q3

REPORT INFORMATION
  Report Type: Spontaneous
  Country: US (occurrence: US)
  Receive Date: 20200722
  Receipt Date: 20200722
  Transmission Date: 20201103
  Serious: No
  Sender: FDA-Public Use
  Company Number: US-CELGENEUS-USA-20200705440

PATIENT
  Sex: Male

DRUGS (2)
  1. THALOMID [Suspect]
     Active Substance: THALIDOMIDE
     Indication: GASTROINTESTINAL ANGIODYSPLASIA
     Dosage: 50 MILLIGRAM
     Route: 048
     Dates: start: 202006
  2. THALOMID [Suspect]
     Active Substance: THALIDOMIDE
     Indication: OFF LABEL USE

REACTIONS (6)
  - Thinking abnormal [Unknown]
  - Respiration abnormal [Unknown]
  - Pain in extremity [Unknown]
  - Dizziness [Unknown]
  - Chest pain [Unknown]
  - Somnolence [Unknown]

NARRATIVE: CASE EVENT DATE: 2020
